FAERS Safety Report 4335818-7 (Version None)
Quarter: 2004Q2

REPORT INFORMATION
  Report Type: 
  Country: None (occurrence: None)
  Receive Date: 20040405
  Receipt Date: 20021106
  Transmission Date: 20050107
  Serious: Yes (Death, Life-Threatening)
  Sender: FDA-Public Use
  Company Number: 2002IC000310

PATIENT
  Age: 69 Year
  Sex: Male

DRUGS (4)
  1. FLUOROURACIL [Suspect]
     Indication: GASTRIC CANCER
     Dosage: 750 MG; INTRAVENOUS
     Route: 042
     Dates: start: 20020620, end: 20020718
  2. ISOVORIN [Suspect]
     Indication: GASTRIC CANCER
     Dosage: 375 MG; INTRAVENOUS
     Route: 042
     Dates: start: 20020620, end: 20020718
  3. BASEN [Concomitant]
  4. FASTIC (NATEGLINIDE) [Concomitant]

REACTIONS (20)
  - ALANINE AMINOTRANSFERASE INCREASED [None]
  - ASPARTATE AMINOTRANSFERASE INCREASED [None]
  - DIARRHOEA [None]
  - DISSEMINATED INTRAVASCULAR COAGULATION [None]
  - ENTEROCOLITIS [None]
  - FIBRIN DEGRADATION PRODUCTS INCREASED [None]
  - GASTRIC CANCER [None]
  - GASTROINTESTINAL MUCOSAL DISORDER [None]
  - GASTROINTESTINAL NECROSIS [None]
  - JAUNDICE [None]
  - LEUKOPENIA [None]
  - METASTASES TO LIVER [None]
  - MULTI-ORGAN FAILURE [None]
  - NECROTISING COLITIS [None]
  - PYREXIA [None]
  - RENAL FAILURE [None]
  - RENAL IMPAIRMENT [None]
  - RESPIRATORY FAILURE [None]
  - SEPTIC SHOCK [None]
  - THROMBOCYTOPENIA [None]
